FAERS Safety Report 11942817 (Version 1)
Quarter: 2016Q1

REPORT INFORMATION
  Report Type: Spontaneous
  Country: US (occurrence: US)
  Receive Date: 20160125
  Receipt Date: 20160125
  Transmission Date: 20160526
  Serious: No
  Sender: FDA-Public Use
  Company Number: US-UNITED THERAPEUTICS-UNT-2015-012546

PATIENT
  Sex: Male
  Weight: 99.77 kg

DRUGS (1)
  1. ORENITRAM [Suspect]
     Active Substance: TREPROSTINIL
     Indication: PULMONARY HYPERTENSION
     Dosage: 0.125 MG, TID
     Route: 048
     Dates: start: 20150930, end: 20151006

REACTIONS (8)
  - Hyperhidrosis [Unknown]
  - Vomiting [Unknown]
  - Headache [Recovered/Resolved]
  - Migraine [Unknown]
  - Drug hypersensitivity [Unknown]
  - Pruritus generalised [Recovered/Resolved]
  - Rash [Recovered/Resolved]
  - Nausea [Recovered/Resolved]

NARRATIVE: CASE EVENT DATE: 2015
